FAERS Safety Report 4817555-5 (Version None)
Quarter: 2005Q4

REPORT INFORMATION
  Report Type: 
  Country: None (occurrence: None)
  Receive Date: 20051031
  Receipt Date: 20051018
  Transmission Date: 20060501
  Serious: Yes (Death, Hospitalization)
  Sender: FDA-Public Use
  Company Number: 2005045173

PATIENT
  Age: 1 Year
  Sex: Male

DRUGS (4)
  1. ADRIAMYCIN PFS [Suspect]
     Indication: ACUTE LYMPHOCYTIC LEUKAEMIA
     Dosage: (25 MG/M2,)
  2. ASPARAGINASE (ASPARAGINASE) [Suspect]
     Indication: ACUTE LYMPHOCYTIC LEUKAEMIA
     Dosage: (1000 U/M2 ONCE),
  3. DEXAMETHASONE [Suspect]
     Indication: ACUTE LYMPHOCYTIC LEUKAEMIA
     Dosage: (10 MG/M2,)
  4. VINCRISTINE [Suspect]
     Indication: ACUTE LYMPHOCYTIC LEUKAEMIA
     Dosage: (1.5 MG/M2, WEEKLY)

REACTIONS (8)
  - ADENOVIRAL HEPATITIS [None]
  - COAGULOPATHY [None]
  - CONGENITAL HERPES SIMPLEX INFECTION [None]
  - HEPATIC ENCEPHALOPATHY [None]
  - LYMPHOCYTE COUNT DECREASED [None]
  - PSEUDOMONAS INFECTION [None]
  - RENAL FAILURE [None]
  - STAPHYLOCOCCAL INFECTION [None]
